FAERS Safety Report 23153564 (Version 1)
Quarter: 2023Q4

REPORT INFORMATION
  Report Type: Spontaneous
  Country: US (occurrence: None)
  Receive Date: 20231106
  Receipt Date: 20231106
  Transmission Date: 20240109
  Serious: No
  Sender: FDA-Public Use
  Company Number: None

PATIENT

DRUGS (2)
  1. DOFETILIDE [Suspect]
     Active Substance: DOFETILIDE
  2. LURASIDONE [Suspect]
     Active Substance: LURASIDONE

REACTIONS (2)
  - Product commingling [None]
  - Intercepted product dispensing error [None]
